FAERS Safety Report 5411863-5 (Version None)
Quarter: 2007Q3

REPORT INFORMATION
  Report Type: 
  Country: None (occurrence: None)
  Receive Date: 20070813
  Receipt Date: 20070801
  Transmission Date: 20080115
  Serious: Yes (Hospitalization, Other)
  Sender: FDA-Public Use
  Company Number: US-ELI_LILLY_AND_COMPANY-US200708001161

PATIENT
  Age: 29 Year
  Sex: Male

DRUGS (5)
  1. ZYPREXA [Suspect]
     Dosage: 30 MG, DAILY (1/D)
     Route: 048
  2. ARIPIPRAZOLE [Concomitant]
     Dosage: 15 MG, DAILY (1/D)
  3. WARFARIN SODIUM [Concomitant]
     Dosage: 7.5 MG, DAILY (1/D)
  4. ALPRAZOLAM [Concomitant]
  5. COCAINE [Concomitant]

REACTIONS (12)
  - BLOOD PRESSURE DECREASED [None]
  - CHOLELITHIASIS [None]
  - DEEP VEIN THROMBOSIS [None]
  - DELIRIUM [None]
  - DIABETIC KETOACIDOSIS [None]
  - GASTROINTESTINAL HAEMORRHAGE [None]
  - HYPERTRIGLYCERIDAEMIA [None]
  - OVERDOSE [None]
  - PANCREATITIS ACUTE [None]
  - PULMONARY EMBOLISM [None]
  - RENAL FAILURE ACUTE [None]
  - UPPER GASTROINTESTINAL HAEMORRHAGE [None]
